FAERS Safety Report 18194654 (Version 2)
Quarter: 2020Q3

REPORT INFORMATION
  Report Type: Report from Study
  Country: CO (occurrence: CO)
  Receive Date: 20200825
  Receipt Date: 20200911
  Transmission Date: 20201103
  Serious: Yes (Death, Hospitalization)
  Sender: FDA-Public Use
  Company Number: CO-SEATTLE GENETICS-2020SGN03529

PATIENT
  Age: 23 Year
  Sex: Female
  Weight: 49 kg

DRUGS (1)
  1. BRENTUXIMAB VEDOTIN [Suspect]
     Active Substance: BRENTUXIMAB VEDOTIN
     Indication: HODGKIN^S DISEASE
     Dosage: 61 MILLIGRAM, Q3WEEKS
     Route: 042
     Dates: start: 20191217, end: 20200718

REACTIONS (3)
  - Dyspnoea [Recovering/Resolving]
  - Death [Fatal]
  - Urinary tract infection [Recovering/Resolving]

NARRATIVE: CASE EVENT DATE: 20200801
